FAERS Safety Report 17053992 (Version 1)
Quarter: 2019Q4

REPORT INFORMATION
  Report Type: Spontaneous
  Country: US (occurrence: US)
  Receive Date: 20191120
  Receipt Date: 20191120
  Transmission Date: 20200122
  Serious: Yes (Other)
  Sender: FDA-Public Use
  Company Number: US-AMGEN-USASP2019189858

PATIENT
  Age: 64 Year
  Sex: Female

DRUGS (6)
  1. ALBUTEROL [SALBUTAMOL] [Concomitant]
     Active Substance: ALBUTEROL
  2. CALCIUM [Concomitant]
     Active Substance: CALCIUM
  3. METOPROLOL. [Concomitant]
     Active Substance: METOPROLOL
     Dosage: 25 MILLIGRAM, TID
  4. SPIRIVA [Concomitant]
     Active Substance: TIOTROPIUM BROMIDE MONOHYDRATE
  5. PROLIA [Suspect]
     Active Substance: DENOSUMAB
     Indication: OSTEOPOROSIS
     Dosage: UNK, Q6MO
     Route: 065
     Dates: start: 2014
  6. ADVAIR HFA [Concomitant]
     Active Substance: FLUTICASONE PROPIONATE\SALMETEROL XINAFOATE

REACTIONS (27)
  - Back pain [Not Recovered/Not Resolved]
  - Diarrhoea [Unknown]
  - Ulcer [Unknown]
  - Hypertension [Unknown]
  - Post procedural fever [Unknown]
  - Amnesia [Unknown]
  - Dry skin [Unknown]
  - Pain in jaw [Not Recovered/Not Resolved]
  - Nausea [Unknown]
  - Bronchitis [Unknown]
  - Abdominal discomfort [Not Recovered/Not Resolved]
  - Eczema [Unknown]
  - Atrial thrombosis [Unknown]
  - Pneumonia [Not Recovered/Not Resolved]
  - Degenerative bone disease [Unknown]
  - Inguinal hernia [Unknown]
  - Weight decreased [Unknown]
  - Insomnia [Unknown]
  - Headache [Not Recovered/Not Resolved]
  - Fatigue [Unknown]
  - Pain in extremity [Unknown]
  - Alopecia [Not Recovered/Not Resolved]
  - Blindness [Unknown]
  - Lethargy [Unknown]
  - Dry mouth [Unknown]
  - Dizziness [Not Recovered/Not Resolved]
  - Vomiting [Unknown]

NARRATIVE: CASE EVENT DATE: 2014
